FAERS Safety Report 5806949-7 (Version None)
Quarter: 2008Q3

REPORT INFORMATION
  Report Type: 
  Country: None (occurrence: None)
  Receive Date: 20080711
  Receipt Date: 20080702
  Transmission Date: 20090109
  Serious: Yes (Other)
  Sender: FDA-Public Use
  Company Number: US-JNJFOC-20080701945

PATIENT
  Sex: Male

DRUGS (1)
  1. ULTRAM ER [Suspect]
     Indication: BACK PAIN
     Route: 048

REACTIONS (2)
  - OPIATES POSITIVE [None]
  - ROAD TRAFFIC ACCIDENT [None]
